FAERS Safety Report 6903288-8 (Version None)
Quarter: 2010Q3

REPORT INFORMATION
  Report Type: 
  Country: None (occurrence: None)
  Receive Date: 20100803
  Receipt Date: 20080708
  Transmission Date: 20110219
  Serious: No
  Sender: FDA-Public Use
  Company Number: US-PFIZER INC-2008057862

PATIENT
  Sex: Male

DRUGS (6)
  1. LYRICA [Suspect]
     Indication: RESTLESS LEGS SYNDROME
     Dosage: TDD:300MG
     Dates: start: 20070101
  2. REQUIP [Concomitant]
     Indication: RESTLESS LEGS SYNDROME
  3. AVAPRO [Concomitant]
  4. WELLBUTRIN [Concomitant]
  5. ASPIRIN [Concomitant]
     Indication: ANTICOAGULANT THERAPY
  6. TRIAMTERENE AND HYDROCHLOROTHIAZIDE [Concomitant]
     Indication: HYPERTENSION

REACTIONS (5)
  - AMNESIA [None]
  - ATAXIA [None]
  - CONSTIPATION [None]
  - DYSARTHRIA [None]
  - OEDEMA [None]
